FAERS Safety Report 26130588 (Version 1)
Quarter: 2025Q4

REPORT INFORMATION
  Report Type: Spontaneous
  Country: US (occurrence: None)
  Receive Date: 20251205
  Receipt Date: 20251205
  Transmission Date: 20260119
  Serious: Yes (Hospitalization)
  Sender: FDA-CTU
  Company Number: None

PATIENT
  Sex: Female

DRUGS (11)
  1. VELTASSA [Suspect]
     Active Substance: PATIROMER
     Indication: Hyperkalaemia
     Dosage: TAKE 8.4 GRAMS BY MOUTH DAILY
     Route: 048
     Dates: start: 20250723
  2. ABILIFY TAB 10MG [Concomitant]
  3. ASPIRIN [Concomitant]
     Active Substance: ASPIRIN
  4. ATENOLOL TAB 50MG [Concomitant]
  5. CLONAZEPAM [Concomitant]
     Active Substance: CLONAZEPAM
  6. EFFEXOR XR CAP 150MG [Concomitant]
  7. ENALAPRIL TAB 2.5MG [Concomitant]
  8. GINGER ROOT CAP  550MG [Concomitant]
  9. HUMALOG PEN INJ 100/ML [Concomitant]
  10. LANTUS INJ 100/ML [Concomitant]
  11. LORATADINE TAB 10MG [Concomitant]

REACTIONS (1)
  - Therapy interrupted [None]
